FAERS Safety Report 6788560-7 (Version None)
Quarter: 2010Q2

REPORT INFORMATION
  Report Type: 
  Country: None (occurrence: None)
  Receive Date: 20100623
  Receipt Date: 20080506
  Transmission Date: 20101027
  Serious: No
  Sender: FDA-Public Use
  Company Number: US-PFIZER INC-2008023478

PATIENT
  Sex: Male

DRUGS (5)
  1. SUTENT [Suspect]
     Indication: RENAL CANCER
     Dosage: INTERVAL: DAILY
     Dates: start: 20061120
  2. CARDIZEM [Concomitant]
  3. PRAVASTATIN [Concomitant]
  4. SITAGLIPTIN [Concomitant]
  5. HYDROCHLOROTHIAZIDE [Concomitant]

REACTIONS (1)
  - SKIN DISCOLOURATION [None]
